FAERS Safety Report 15642722 (Version 3)
Quarter: 2019Q1

REPORT INFORMATION
  Report Type: Spontaneous
  Country: US (occurrence: US)
  Receive Date: 20181121
  Receipt Date: 20190114
  Transmission Date: 20190417
  Serious: Yes (Other)
  Sender: FDA-Public Use
  Company Number: US-AMGEN-USASP2018162643

PATIENT
  Age: 67 Year
  Sex: Female

DRUGS (4)
  1. NPLATE [Suspect]
     Active Substance: ROMIPLOSTIM
     Dosage: 2 MUG/KG, UNK
     Route: 065
  2. NPLATE [Suspect]
     Active Substance: ROMIPLOSTIM
     Dosage: 1.5 MUG/KG, UNK
     Route: 065
     Dates: start: 20180727
  3. NPLATE [Suspect]
     Active Substance: ROMIPLOSTIM
     Dosage: 1.5 MUG/KG, UNK
     Route: 065
     Dates: start: 201710
  4. NPLATE [Suspect]
     Active Substance: ROMIPLOSTIM
     Indication: THROMBOCYTOPENIA
     Dosage: 1.5 MUG/KG, UNK
     Route: 065
     Dates: start: 201702, end: 201707

REACTIONS (3)
  - Contusion [Unknown]
  - Drug effect variable [Unknown]
  - Platelet count abnormal [Unknown]

NARRATIVE: CASE EVENT DATE: 20180727
